FAERS Safety Report 13839383 (Version 1)
Quarter: 2017Q3

REPORT INFORMATION
  Report Type: Spontaneous
  Country: US (occurrence: US)
  Receive Date: 20170807
  Receipt Date: 20170807
  Transmission Date: 20171127
  Serious: No
  Sender: FDA-Public Use
  Company Number: US-BIOGEN-2017BI00441047

PATIENT
  Age: 42 Year
  Sex: Female

DRUGS (1)
  1. PLEGRIDY [Suspect]
     Active Substance: PEGINTERFERON BETA-1A
     Indication: MULTIPLE SCLEROSIS
     Route: 058
     Dates: start: 201612, end: 20170622

REACTIONS (2)
  - Rash [Recovered/Resolved]
  - Lymphadenitis [Recovered/Resolved]

NARRATIVE: CASE EVENT DATE: 20170622
